FAERS Safety Report 11253056 (Version 3)
Quarter: 2015Q3

REPORT INFORMATION
  Report Type: Spontaneous
  Country: JP (occurrence: JP)
  Receive Date: 20150709
  Receipt Date: 20150720
  Transmission Date: 20151125
  Serious: Yes (Hospitalization)
  Sender: FDA-Public Use
  Company Number: JP-ROCHE-1605422

PATIENT
  Age: 57 Year
  Sex: Male

DRUGS (1)
  1. XELODA [Suspect]
     Active Substance: CAPECITABINE
     Indication: SIGNET-RING CELL CARCINOMA
     Dosage: DOSAGE UNCERTAIN. ?SIX COURSES
     Route: 048

REACTIONS (1)
  - Anastomotic ulcer haemorrhage [Unknown]
